FAERS Safety Report 19010951 (Version 1)
Quarter: 2021Q1

REPORT INFORMATION
  Report Type: Spontaneous
  Country: US (occurrence: US)
  Receive Date: 20210315
  Receipt Date: 20210315
  Transmission Date: 20210420
  Serious: Yes (Hospitalization, Other)
  Sender: FDA-Public Use
  Company Number: None

PATIENT
  Age: 66 Year
  Sex: Male

DRUGS (2)
  1. N/A [Concomitant]
     Active Substance: UNSPECIFIED INGREDIENT
  2. EVEROLIMUS. [Suspect]
     Active Substance: EVEROLIMUS
     Indication: LIPOMA
     Route: 048
     Dates: start: 20200201

REACTIONS (2)
  - Surgery [None]
  - Therapy interrupted [None]

NARRATIVE: CASE EVENT DATE: 20210205
